FAERS Safety Report 15994533 (Version 1)
Quarter: 2019Q1

REPORT INFORMATION
  Report Type: Spontaneous
  Country: US (occurrence: US)
  Receive Date: 20190222
  Receipt Date: 20190222
  Transmission Date: 20190418
  Serious: No
  Sender: FDA-Public Use
  Company Number: US-INSYS THERAPEUTICS, INC-INS201809-000344

PATIENT
  Sex: Female

DRUGS (12)
  1. SIMVASTATIN. [Concomitant]
     Active Substance: SIMVASTATIN
  2. WARFARIN [Concomitant]
     Active Substance: WARFARIN
  3. TRAMADOL. [Concomitant]
     Active Substance: TRAMADOL
  4. LUMIGAN [Concomitant]
     Active Substance: BIMATOPROST
  5. POTASSIUM [Concomitant]
     Active Substance: POTASSIUM
  6. LOSARTAN. [Concomitant]
     Active Substance: LOSARTAN
  7. HYDROCODONE [Concomitant]
     Active Substance: HYDROCODONE
  8. SUBSYS [Suspect]
     Active Substance: FENTANYL
     Indication: PAIN
     Route: 060
     Dates: start: 20180913
  9. ANASTROZOLE. [Concomitant]
     Active Substance: ANASTROZOLE
  10. VITAMINS AND SUPPLEMENTS [Concomitant]
  11. METOPROLOL. [Concomitant]
     Active Substance: METOPROLOL
  12. NORCO [Concomitant]
     Active Substance: ACETAMINOPHEN\HYDROCODONE BITARTRATE

REACTIONS (2)
  - Dizziness [Recovered/Resolved]
  - Hallucination [Recovered/Resolved]
